FAERS Safety Report 7606502-9 (Version None)
Quarter: 2011Q3

REPORT INFORMATION
  Report Type: 
  Country: None (occurrence: None)
  Receive Date: 20110713
  Receipt Date: 20110711
  Transmission Date: 20111222
  Serious: Yes (Hospitalization, Other)
  Sender: FDA-Public Use
  Company Number: US-PFIZER INC-2011084667

PATIENT
  Sex: Male

DRUGS (2)
  1. DILANTIN [Concomitant]
     Indication: CONVULSION
     Dosage: UNK,
     Dates: start: 19820101
  2. CHANTIX [Suspect]
     Indication: SMOKING CESSATION THERAPY
     Dosage: UNK,
     Dates: start: 20090709, end: 20090823

REACTIONS (3)
  - ANXIETY [None]
  - SUICIDAL BEHAVIOUR [None]
  - DEPRESSION [None]
